FAERS Safety Report 7262614-3 (Version None)
Quarter: 2011Q1

REPORT INFORMATION
  Report Type: 
  Country: None (occurrence: None)
  Receive Date: 20110130
  Receipt Date: 20100915
  Transmission Date: 20110831
  Serious: No
  Sender: FDA-Public Use
  Company Number: US-ABBOTT-10P-163-0665524-00

PATIENT
  Age: 22 Year
  Sex: Female

DRUGS (6)
  1. ZANTAC [Concomitant]
     Indication: PRODUCT USED FOR UNKNOWN INDICATION
  2. CORTISONE [Concomitant]
     Indication: PRODUCT USED FOR UNKNOWN INDICATION
     Dosage: FOAM
     Route: 054
  3. IMODIUM [Concomitant]
     Indication: PRODUCT USED FOR UNKNOWN INDICATION
  4. ORTHO CYCLEN-28 [Concomitant]
     Indication: CONTRACEPTION
     Dosage: PILLS
  5. HUMIRA [Suspect]
     Indication: CROHN'S DISEASE
     Dates: start: 20100201
  6. TYLENOL W/ CODEINE NO. 3 [Concomitant]
     Indication: PRODUCT USED FOR UNKNOWN INDICATION

REACTIONS (4)
  - DRUG DOSE OMISSION [None]
  - DEVICE MALFUNCTION [None]
  - INJECTION SITE INJURY [None]
  - WRONG TECHNIQUE IN DRUG USAGE PROCESS [None]
